FAERS Safety Report 20597798 (Version 1)
Quarter: 2022Q1

REPORT INFORMATION
  Report Type: Spontaneous
  Country: US (occurrence: None)
  Receive Date: 20220315
  Receipt Date: 20220315
  Transmission Date: 20220423
  Serious: No
  Sender: FDA-Public Use
  Company Number: None

PATIENT
  Age: 52 Year
  Sex: Female
  Weight: 72.57 kg

DRUGS (2)
  1. OCTAGAM IMMUNE GLOBULIN (HUMAN) [Suspect]
     Active Substance: HUMAN IMMUNOGLOBULIN G
  2. MAPAP 500mg Oral [Concomitant]

REACTIONS (10)
  - Fatigue [None]
  - Nausea [None]
  - Chromaturia [None]
  - Decreased appetite [None]
  - Influenza like illness [None]
  - Pain [None]
  - Chills [None]
  - Headache [None]
  - Flushing [None]
  - Jaundice [None]

NARRATIVE: CASE EVENT DATE: 20220225
